FAERS Safety Report 7844203-2 (Version None)
Quarter: 2011Q4

REPORT INFORMATION
  Report Type: 
  Country: None (occurrence: None)
  Receive Date: 20111025
  Receipt Date: 20111011
  Transmission Date: 20120403
  Serious: Yes (Hospitalization, Other)
  Sender: FDA-Public Use
  Company Number: US-ELI_LILLY_AND_COMPANY-US201105005222

PATIENT
  Sex: Female

DRUGS (8)
  1. ADVAIR DISKUS 100/50 [Concomitant]
     Dosage: UNK, QD
  2. DOXYCYCLINE [Concomitant]
     Dosage: UNK, QD
  3. FORTEO [Suspect]
     Indication: OSTEOPOROSIS
     Dosage: 20 UG, QD
     Dates: start: 20100601
  4. VERAPAMIL [Concomitant]
     Dosage: UNK, QD
  5. SYNTHROID [Concomitant]
     Dosage: UNK, QD
  6. OMEPRAZOLE [Concomitant]
     Indication: GASTROOESOPHAGEAL REFLUX DISEASE
     Dosage: UNK, QD
  7. ZOLOFT [Concomitant]
     Dosage: UNK, QD
  8. ATENOLOL [Concomitant]
     Dosage: UNK, QD

REACTIONS (5)
  - PROCEDURAL COMPLICATION [None]
  - DEVICE DISLOCATION [None]
  - DEVICE RELATED INFECTION [None]
  - BONE DISORDER [None]
  - FEMUR FRACTURE [None]
